FAERS Safety Report 13986264 (Version 2)
Quarter: 2017Q3

REPORT INFORMATION
  Report Type: Spontaneous
  Country: US (occurrence: US)
  Receive Date: 20170919
  Receipt Date: 20170929
  Transmission Date: 20171128
  Serious: Yes (Disabling, Other)
  Sender: FDA-Public Use
  Company Number: US-AUROBINDO-AUR-APL-2017-40287

PATIENT
  Sex: Male

DRUGS (1)
  1. AMIODARONE HYDROCHLORIDE. [Suspect]
     Active Substance: AMIODARONE HYDROCHLORIDE
     Indication: ATRIAL FIBRILLATION
     Route: 065

REACTIONS (6)
  - Visual impairment [Unknown]
  - Diplopia [Unknown]
  - Eye injury [Unknown]
  - Coordination abnormal [Unknown]
  - Dizziness [Unknown]
  - Blindness [Unknown]

NARRATIVE: CASE EVENT DATE: 201608
